FAERS Safety Report 9789252 (Version 5)
Quarter: 2014Q1

REPORT INFORMATION
  Report Type: Report from Study
  Country: BR (occurrence: BR)
  Receive Date: 20131230
  Receipt Date: 20140206
  Transmission Date: 20141002
  Serious: Yes (Hospitalization)
  Sender: FDA-Public Use
  Company Number: PHHO2013BR016452

PATIENT
  Age: 50 Year
  Sex: Female
  Weight: 77 kg

DRUGS (10)
  1. ACZ885 [Suspect]
     Indication: CARDIOVASCULAR EVENT PROPHYLAXIS
     Dosage: 300 MG, UNK
     Route: 058
     Dates: start: 20131023
  2. ATORVASTATIN [Concomitant]
     Indication: DYSLIPIDAEMIA
     Dosage: 80 MG, ONCE/SINGLE
     Dates: start: 20130605, end: 20131215
  3. ACETYLSALICYLIC ACID [Concomitant]
     Indication: CORONARY ARTERY DISEASE
     Dosage: 100 MG, ONCE/SINGLE
     Dates: start: 201112, end: 20131216
  4. ENALAPRIL MALEATE [Concomitant]
     Indication: HYPERTENSION
     Dosage: 10 MG, BID
     Dates: start: 20120425, end: 20131215
  5. ATENOLOL [Concomitant]
     Indication: HYPERTENSION
     Dosage: 50 MG, BID
     Dates: start: 201109, end: 20131215
  6. ATENOLOL [Concomitant]
     Indication: CORONARY ARTERY DISEASE
  7. CIMETIDINE [Concomitant]
     Indication: PROPHYLAXIS AGAINST GASTROINTESTINAL ULCER
     Dosage: 200 MG, ONCE/SINGLE
     Dates: start: 201109, end: 20131215
  8. GLIMEPIRIDE [Concomitant]
     Indication: DIABETES MELLITUS
     Dosage: 2 MG, ONCE/SINGLE
     Dates: start: 201309, end: 20131215
  9. FUROSEMIDE [Concomitant]
     Indication: LEFT VENTRICULAR DYSFUNCTION
     Dosage: 40 MG, ONCE/SINGLE
     Dates: start: 200912, end: 20131215
  10. METFORMIN HYDROCHLORIDE [Concomitant]
     Indication: DIABETES MELLITUS
     Dosage: 850 MG, TID
     Dates: start: 200912, end: 20131215

REACTIONS (1)
  - Pancreatitis acute [Recovered/Resolved]
